FAERS Safety Report 7131748-6 (Version None)
Quarter: 2010Q4

REPORT INFORMATION
  Report Type: 
  Country: None (occurrence: None)
  Receive Date: 20101202
  Receipt Date: 20101122
  Transmission Date: 20110411
  Serious: Yes (Hospitalization, Other)
  Sender: FDA-Public Use
  Company Number: US-BIOGENIDEC-2010BI032260

PATIENT
  Age: 65 Year
  Sex: Female

DRUGS (12)
  1. TYSABRI [Suspect]
     Indication: MULTIPLE SCLEROSIS
     Dates: start: 20090306
  2. AVONEX [Concomitant]
     Indication: MULTIPLE SCLEROSIS
  3. AMPRYA (ORAL DALFAMPRIDINE) [Concomitant]
     Indication: MULTIPLE SCLEROSIS
     Dates: start: 20100701, end: 20100801
  4. STEROIDS (NOS) [Concomitant]
  5. BACLOFEN [Concomitant]
  6. EFFEXOR (VENLAFAXINE HYDOCHLORIDE) [Concomitant]
  7. LISINOPRIL [Concomitant]
  8. COREG [Concomitant]
  9. LORAZEPAM [Concomitant]
  10. MULTI-VITAMINS [Concomitant]
  11. CALCIUM [Concomitant]
  12. VITAMIN D [Concomitant]

REACTIONS (8)
  - CONVULSION [None]
  - FEELING ABNORMAL [None]
  - MEMORY IMPAIRMENT [None]
  - MENTAL STATUS CHANGES [None]
  - NAUSEA [None]
  - SYNCOPE [None]
  - THINKING ABNORMAL [None]
  - UNRESPONSIVE TO STIMULI [None]
